FAERS Safety Report 10072996 (Version 2)
Quarter: 2014Q3

REPORT INFORMATION
  Report Type: Report from Study
  Country: NZ (occurrence: NZ)
  Receive Date: 20140411
  Receipt Date: 20140801
  Transmission Date: 20150326
  Serious: Yes (Death, Other)
  Sender: FDA-Public Use
  Company Number: PHHY2014NZ044279

PATIENT
  Age: 75 Year
  Sex: Female

DRUGS (6)
  1. MADOPAR [Concomitant]
     Active Substance: BENSERAZIDE HYDROCHLORIDE\LEVODOPA
     Indication: PARKINSON^S DISEASE
     Dosage: 5 X DAILY
     Route: 048
  2. CLOZARIL [Suspect]
     Active Substance: CLOZAPINE
     Indication: PARKINSON^S DISEASE PSYCHOSIS
     Dosage: 25 MG, NIGHT (NOCTE)
     Route: 048
     Dates: start: 20061031
  3. CLOZARIL [Suspect]
     Active Substance: CLOZAPINE
     Dosage: UNK
     Route: 048
     Dates: start: 20090731, end: 20140407
  4. FUROSEMIDE. [Concomitant]
     Active Substance: FUROSEMIDE
     Indication: CARDIAC FAILURE CONGESTIVE
     Dosage: 800 UKN
     Route: 048
  5. CHOLECALCIFEROL [Concomitant]
     Active Substance: CHOLECALCIFEROL
     Indication: VITAMIN D DEFICIENCY
     Dosage: 1 TO 25 MG, MONTHLY
     Route: 048
  6. CLOPIDOGREL [Concomitant]
     Active Substance: CLOPIDOGREL BISULFATE
     Indication: CEREBROVASCULAR ACCIDENT
     Dosage: 800 MG
     Route: 048

REACTIONS (5)
  - Dyspnoea [Unknown]
  - Respiratory arrest [Fatal]
  - Respiratory failure [Fatal]
  - Chronic obstructive pulmonary disease [Fatal]
  - Depressed level of consciousness [Unknown]

NARRATIVE: CASE EVENT DATE: 20140408
